FAERS Safety Report 4849920-4 (Version None)
Quarter: 2005Q4

REPORT INFORMATION
  Report Type: 
  Country: None (occurrence: None)
  Receive Date: 20051114
  Receipt Date: 20050622
  Transmission Date: 20060501
  Serious: Yes (Hospitalization)
  Sender: FDA-Public Use
  Company Number: 2005BH000359

PATIENT
  Age: 18 Year
  Sex: Female

DRUGS (4)
  1. PROMETHAZINE [Suspect]
     Indication: DEHYDRATION
     Dosage: 25 MG; IV
     Route: 042
     Dates: start: 20050612
  2. PROMETHAZINE [Suspect]
     Indication: NAUSEA
     Dosage: 25 MG; IV
     Route: 042
     Dates: start: 20050612
  3. PROMETHAZINE [Suspect]
     Indication: VOMITING
     Dosage: 25 MG; IV
     Route: 042
     Dates: start: 20050612
  4. ORAL CONTRACEPTIVE NOS [Concomitant]

REACTIONS (6)
  - FINGER AMPUTATION [None]
  - INJECTION SITE ERYTHEMA [None]
  - INJECTION SITE EXTRAVASATION [None]
  - INJECTION SITE REACTION [None]
  - OEDEMA PERIPHERAL [None]
  - SKIN DISCOLOURATION [None]
